FAERS Safety Report 20806837 (Version 4)
Quarter: 2022Q4

REPORT INFORMATION
  Report Type: Other
  Country: CA (occurrence: CA)
  Receive Date: 20220510
  Receipt Date: 20221110
  Transmission Date: 20230113
  Serious: No
  Sender: FDA-Public Use
  Company Number: CA-TOLMAR, INC.-22CA033097

PATIENT
  Sex: Male

DRUGS (6)
  1. ELIGARD [Suspect]
     Active Substance: LEUPROLIDE ACETATE
     Indication: Prostate cancer
     Dosage: 22.5 MILLIGRAM, Q 3 MONTH
     Route: 058
     Dates: start: 20211130
  2. ELIGARD [Suspect]
     Active Substance: LEUPROLIDE ACETATE
     Dosage: 22.5 MILLIGRAM, Q 3 MONTH
     Route: 058
     Dates: start: 20220221
  3. ELIGARD [Suspect]
     Active Substance: LEUPROLIDE ACETATE
     Dosage: 22.5 MILLIGRAM, Q 3 MONTH
     Route: 058
     Dates: start: 20220517
  4. ELIGARD [Suspect]
     Active Substance: LEUPROLIDE ACETATE
     Dosage: 22.5 MILLIGRAM, Q 3 MONTH
     Route: 058
     Dates: start: 20220810
  5. ELIGARD [Suspect]
     Active Substance: LEUPROLIDE ACETATE
     Dosage: 22.5 MILLIGRAM, Q 3 MONTH
     Route: 058
     Dates: start: 20220802
  6. RADIATION THERAPY [Suspect]
     Active Substance: RADIATION THERAPY
     Indication: Product used for unknown indication
     Dosage: UNK, QD
     Dates: start: 2022, end: 202207

REACTIONS (4)
  - General physical health deterioration [Unknown]
  - Hot flush [Recovering/Resolving]
  - Fatigue [Unknown]
  - Asthenia [Not Recovered/Not Resolved]
